FAERS Safety Report 8255480-0 (Version None)
Quarter: 2012Q1

REPORT INFORMATION
  Report Type: 
  Country: None (occurrence: None)
  Receive Date: 20120329
  Receipt Date: 20120315
  Transmission Date: 20120608
  Serious: Yes (Other)
  Sender: FDA-Public Use
  Company Number: 1230021

PATIENT
  Age: 53 Year
  Sex: Male
  Weight: 68 kg

DRUGS (2)
  1. PACLITAXEL [Suspect]
     Indication: PRODUCT USED FOR UNKNOWN INDICATION
     Dosage: 80 MG/M2 MILLIGRAM(S)/SQ. METER, (1 WEEK), INTRAVENOUS
     Route: 042
     Dates: start: 20101029, end: 20110627
  2. (AVASTIN /01326102/) [Concomitant]

REACTIONS (5)
  - ERYTHEMA [None]
  - HOT FLUSH [None]
  - DYSPNOEA [None]
  - INFUSION RELATED REACTION [None]
  - HYPERSENSITIVITY [None]
